FAERS Safety Report 19621579 (Version 2)
Quarter: 2021Q3

REPORT INFORMATION
  Report Type: Spontaneous
  Country: CN (occurrence: CN)
  Receive Date: 20210728
  Receipt Date: 20210810
  Transmission Date: 20211014
  Serious: Yes (Other)
  Sender: FDA-Public Use
  Company Number: NVSC2021CN164338

PATIENT
  Age: 10 Year
  Sex: Male
  Weight: 40 kg

DRUGS (1)
  1. TRILEPTAL [Suspect]
     Active Substance: OXCARBAZEPINE
     Indication: EPILEPSY
     Dosage: 2 TABLETS IN THE MORNING AND EVENING RESPECTIVELY (ABOUT 150 MG/KG / DAY)
     Route: 048
     Dates: start: 202104

REACTIONS (3)
  - Partial seizures [Recovering/Resolving]
  - Off label use [Unknown]
  - Drug ineffective [Unknown]
